FAERS Safety Report 19855856 (Version 1)
Quarter: 2021Q3

REPORT INFORMATION
  Report Type: Report from Study
  Country: US (occurrence: US)
  Receive Date: 20210920
  Receipt Date: 20210920
  Transmission Date: 20211014
  Serious: Yes (Other)
  Sender: FDA-Public Use
  Company Number: US-JAZZ-2021-US-017099

PATIENT
  Sex: Male

DRUGS (3)
  1. XYREM [Suspect]
     Active Substance: SODIUM OXYBATE
     Indication: CATAPLEXY
     Dosage: DOSE ADJUSTMENT
     Route: 048
     Dates: start: 201510, end: 201510
  2. XYREM [Suspect]
     Active Substance: SODIUM OXYBATE
     Indication: NARCOLEPSY
     Dosage: 2.25 GRAM, BID
     Route: 048
     Dates: start: 201509, end: 201510
  3. XYREM [Suspect]
     Active Substance: SODIUM OXYBATE
     Dosage: 4.5 GRAM, BID
     Route: 048
     Dates: start: 201510

REACTIONS (11)
  - Trigeminal neuralgia [Recovering/Resolving]
  - Pre-existing condition improved [Unknown]
  - Sarcoidosis [Recovering/Resolving]
  - Headache [Recovered/Resolved]
  - Brain injury [Unknown]
  - Gout [Recovered/Resolved]
  - Tonsillectomy [Unknown]
  - Diabetes mellitus [Unknown]
  - Uvulectomy [Unknown]
  - Bursitis [Recovering/Resolving]
  - Ageusia [Unknown]
